FAERS Safety Report 6749845 (Version 2)
Quarter: 2013Q2

REPORT INFORMATION
  Report Type: Spontaneous
  Country: US (occurrence: US)
  Receive Date: 20080731
  Receipt Date: 20130517
  Transmission Date: 20140414
  Serious: Yes (Other)
  Sender: FDA-Public Use
  Company Number: US200806001501

PATIENT
  Age: 56 Year
  Sex: Female
  Weight: 79.36 kg

DRUGS (6)
  1. BYETTA PEN DISPOSABLE [Suspect]
     Indication: TYPE 2 DIABETES MELLITUS
     Route: 058
     Dates: start: 200711, end: 200712
  2. BYETTA PEN DISPOSABLE [Suspect]
     Indication: TYPE 2 DIABETES MELLITUS
     Route: 058
     Dates: start: 200712
  3. BYETTA PEN DISPOSABLE [Suspect]
     Indication: TYPE 2 DIABETES MELLITUS
     Route: 058
     Dates: start: 2007
  4. EXENATIDE 10MCG PEN, DISPOSABLE DEVICE [Concomitant]
  5. EXENATIDE 10MCG PEN, DISPOSABLE DEVICE [Concomitant]
  6. JANUMET [Concomitant]

REACTIONS (5)
  - Lymphoma [Unknown]
  - Pruritus [Not Recovered/Not Resolved]
  - Rash [Recovering/Resolving]
  - Diarrhoea [Not Recovered/Not Resolved]
  - Urticaria [Unknown]
